FAERS Safety Report 21335410 (Version 3)
Quarter: 2022Q4

REPORT INFORMATION
  Report Type: Spontaneous
  Country: FR (occurrence: FR)
  Receive Date: 20220915
  Receipt Date: 20221004
  Transmission Date: 20230113
  Serious: Yes (Other)
  Sender: FDA-Public Use
  Company Number: FR-ROCHE-3179589

PATIENT
  Age: 61 Year
  Sex: Male

DRUGS (3)
  1. RITUXIMAB [Suspect]
     Active Substance: RITUXIMAB
     Indication: Anti-neutrophil cytoplasmic antibody positive vasculitis
     Dosage: MOST RECENT DOSE ON /APR/2022
     Route: 065
     Dates: start: 202204
  2. ZOVIRAX [Suspect]
     Active Substance: ACYCLOVIR
     Indication: Herpes ophthalmic
     Route: 048
     Dates: start: 20220713, end: 20220722
  3. BACTRIM [Suspect]
     Active Substance: SULFAMETHOXAZOLE\TRIMETHOPRIM
     Indication: Prophylaxis
     Route: 065
     Dates: end: 20220725

REACTIONS (1)
  - Agranulocytosis [Recovered/Resolved]

NARRATIVE: CASE EVENT DATE: 20220722
